FAERS Safety Report 7397926-6 (Version None)
Quarter: 2011Q2

REPORT INFORMATION
  Report Type: 
  Country: None (occurrence: None)
  Receive Date: 20110406
  Receipt Date: 20110404
  Transmission Date: 20111010
  Serious: Yes (Death)
  Sender: FDA-Public Use
  Company Number: CA-ABBOTT-11P-028-0713920-00

PATIENT
  Sex: Male
  Weight: 155 kg

DRUGS (2)
  1. MAVIK [Suspect]
     Indication: ESSENTIAL HYPERTENSION
     Route: 048
     Dates: start: 20090916
  2. ADALAT CC [Concomitant]
     Indication: PRODUCT USED FOR UNKNOWN INDICATION

REACTIONS (4)
  - PANCREATIC CARCINOMA [None]
  - ABDOMINAL PAIN [None]
  - SCHIZOPHRENIA [None]
  - WEIGHT DECREASED [None]
